FAERS Safety Report 12292052 (Version 1)
Quarter: 2016Q2

REPORT INFORMATION
  Report Type: Report from Study
  Country: US (occurrence: US)
  Receive Date: 20160421
  Receipt Date: 20160421
  Transmission Date: 20160815
  Serious: No
  Sender: FDA-Public Use
  Company Number: US-AMGEN-USASL2016039242

PATIENT
  Age: 52 Year
  Sex: Female

DRUGS (1)
  1. REPATHA [Suspect]
     Active Substance: EVOLOCUMAB
     Indication: PRODUCT USED FOR UNKNOWN INDICATION
     Dosage: UNK
     Route: 065

REACTIONS (9)
  - Injection site haemorrhage [Recovered/Resolved]
  - Injection site bruising [Unknown]
  - Vascular injury [Unknown]
  - Injection site erythema [Unknown]
  - Injection site swelling [Unknown]
  - Petechiae [Unknown]
  - Injection site pain [Unknown]
  - Influenza like illness [Recovered/Resolved]
  - Injection site haematoma [Unknown]

NARRATIVE: CASE EVENT DATE: 20160327
